FAERS Safety Report 4675803-9 (Version None)
Quarter: 2005Q2

REPORT INFORMATION
  Report Type: 
  Country: None (occurrence: None)
  Receive Date: 20050527
  Receipt Date: 20050222
  Transmission Date: 20051028
  Serious: Yes (Death, Other)
  Sender: FDA-Public Use
  Company Number: PHBS2005BE02820

PATIENT
  Age: 78 Year
  Sex: Female

DRUGS (8)
  1. ZOMETA [Suspect]
     Indication: METASTASIS
     Dosage: 4 MG, QMO
     Route: 042
     Dates: start: 20031030
  2. ZOMETA [Suspect]
     Dosage: 2 MG
     Route: 042
     Dates: end: 20050208
  3. CHEMOTHERAPEUTICS,OTHER [Concomitant]
  4. FOSAMAX [Concomitant]
     Dates: start: 20031024
  5. PACLITAXEL + CARBOPLATIN [Concomitant]
     Route: 065
     Dates: start: 20010101
  6. CAELYX [Concomitant]
     Route: 065
     Dates: start: 20031024
  7. NOLVADEX [Concomitant]
     Route: 065
     Dates: start: 20031024
  8. AREDIA [Suspect]
     Indication: OSTEOPENIA
     Dosage: UNK, ONCE/SINGLE
     Route: 042
     Dates: start: 20010427, end: 20010427

REACTIONS (10)
  - ASEPTIC NECROSIS BONE [None]
  - DEATH [None]
  - DENTAL CARIES [None]
  - DENTAL EXAMINATION ABNORMAL [None]
  - DISEASE PROGRESSION [None]
  - FALL [None]
  - HIP FRACTURE [None]
  - OSTEONECROSIS [None]
  - PAIN IN JAW [None]
  - RENAL FAILURE [None]
